FAERS Safety Report 4819572-8 (Version None)
Quarter: 2005Q4

REPORT INFORMATION
  Report Type: 
  Country: None (occurrence: None)
  Receive Date: 20051102
  Receipt Date: 20051019
  Transmission Date: 20060501
  Serious: Yes (Other)
  Sender: FDA-Public Use
  Company Number: 27822

PATIENT
  Age: 88 Year
  Sex: Male

DRUGS (2)
  1. ALDARA [Suspect]
     Indication: BASAL CELL CARCINOMA
     Dosage: TOPICAL
     Route: 061
     Dates: start: 20041129, end: 20041216
  2. ALDARA [Suspect]
     Indication: BASAL CELL CARCINOMA
     Dosage: TOPICAL
     Route: 061
     Dates: start: 20041226, end: 20050126

REACTIONS (7)
  - APPLICATION SITE REACTION [None]
  - BLOOD IMMUNOGLOBULIN M INCREASED [None]
  - CONDITION AGGRAVATED [None]
  - DIFFICULTY IN WALKING [None]
  - EYE DISORDER [None]
  - GAIT DISTURBANCE [None]
  - NEUROPATHY [None]
